FAERS Safety Report 19296012 (Version 1)
Quarter: 2021Q2

REPORT INFORMATION
  Report Type: Spontaneous
  Country: FR (occurrence: FR)
  Receive Date: 20210524
  Receipt Date: 20210524
  Transmission Date: 20210717
  Serious: Yes (Hospitalization)
  Sender: FDA-Public Use
  Company Number: FR-MYLANLABS-2021M1030009

PATIENT
  Age: 60 Year
  Sex: Female

DRUGS (1)
  1. OXALIPLATIN. [Suspect]
     Active Substance: OXALIPLATIN
     Indication: COLON CANCER
     Dosage: 132 MILLIGRAM, CYCLE
     Route: 042
     Dates: start: 20200924, end: 20200924

REACTIONS (1)
  - Medical device site extravasation [Not Recovered/Not Resolved]

NARRATIVE: CASE EVENT DATE: 20200924
